FAERS Safety Report 9035886 (Version 1)
Quarter: 2013Q1

REPORT INFORMATION
  Report Type: Spontaneous
  Country: US (occurrence: US)
  Receive Date: 20130129
  Receipt Date: 20130129
  Transmission Date: 20140127
  Serious: Yes (Other)
  Sender: FDA-Public Use
  Company Number: US-ROXANE LABORATORIES, INC.-2013-RO-00129RO

PATIENT
  Age: 74 Year
  Sex: Male

DRUGS (3)
  1. FLUCONAZOLE [Suspect]
     Indication: COCCIDIOIDOMYCOSIS
  2. ITRACONAZOLE [Suspect]
     Indication: COCCIDIOIDOMYCOSIS
  3. VORICONAZOLE [Suspect]
     Indication: COCCIDIOIDOMYCOSIS

REACTIONS (3)
  - Periorbital oedema [Unknown]
  - Erythema [Unknown]
  - Pruritus [Unknown]
